FAERS Safety Report 13576766 (Version 1)
Quarter: 2017Q2

REPORT INFORMATION
  Report Type: Spontaneous
  Country: FR (occurrence: FR)
  Receive Date: 20170524
  Receipt Date: 20170524
  Transmission Date: 20170830
  Serious: Yes (Congenital Anomaly)
  Sender: FDA-Public Use
  Company Number: FR-009507513-1705FRA009297

PATIENT
  Age: 0 Day
  Sex: Female
  Weight: 2.96 kg

DRUGS (3)
  1. NORSET [Suspect]
     Active Substance: MIRTAZAPINE
     Dosage: 1 DF, QD
     Route: 064
  2. LYSANXIA [Suspect]
     Active Substance: PRAZEPAM
     Dosage: 1 DF, QD
     Route: 064
  3. CELESTENE [Concomitant]
     Active Substance: BETAMETHASONE
     Dosage: UNK
     Route: 064
     Dates: start: 20140211, end: 20140212

REACTIONS (3)
  - Talipes [Recovered/Resolved]
  - Cleft palate [Recovered/Resolved]
  - Dermoid cyst [Recovered/Resolved]

NARRATIVE: CASE EVENT DATE: 20140324
